FAERS Safety Report 18503157 (Version 8)
Quarter: 2021Q3

REPORT INFORMATION
  Report Type: Report from Study
  Country: None (occurrence: US)
  Receive Date: 20201114
  Receipt Date: 20210721
  Transmission Date: 20211014
  Serious: Yes (Hospitalization, Other)
  Sender: FDA-Public Use
  Company Number: US-ABBVIE-20K-163-3648663-00

PATIENT
  Age: 60 Year
  Sex: Female

DRUGS (7)
  1. HUMIRA [Suspect]
     Active Substance: ADALIMUMAB
     Route: 058
     Dates: end: 202002
  2. ULTRAM [Concomitant]
     Active Substance: TRAMADOL HYDROCHLORIDE
     Indication: RHEUMATOID ARTHRITIS
  3. LEFLUNOMIDE. [Concomitant]
     Active Substance: LEFLUNOMIDE
     Indication: RHEUMATOID ARTHRITIS
  4. HUMIRA [Suspect]
     Active Substance: ADALIMUMAB
     Indication: RHEUMATOID ARTHRITIS
     Route: 058
     Dates: end: 201803
  5. HUMIRA [Suspect]
     Active Substance: ADALIMUMAB
     Route: 058
     Dates: start: 20210611
  6. TYLENOL ARTHRITIS PAIN [Concomitant]
     Active Substance: ACETAMINOPHEN
     Indication: RHEUMATOID ARTHRITIS
  7. HUMIRA [Suspect]
     Active Substance: ADALIMUMAB
     Route: 058
     Dates: start: 20201029, end: 20210430

REACTIONS (29)
  - Asthma [Not Recovered/Not Resolved]
  - Paraesthesia [Unknown]
  - Product storage error [Unknown]
  - Joint stiffness [Unknown]
  - Fall [Unknown]
  - Procedural pain [Unknown]
  - Thyroidectomy [Recovered/Resolved]
  - Depression [Not Recovered/Not Resolved]
  - Trigger finger [Not Recovered/Not Resolved]
  - Spinal operation [Unknown]
  - Gait disturbance [Not Recovered/Not Resolved]
  - Anxiety [Not Recovered/Not Resolved]
  - Thyroidectomy [Unknown]
  - Joint swelling [Not Recovered/Not Resolved]
  - Sleep apnoea syndrome [Unknown]
  - Mobility decreased [Not Recovered/Not Resolved]
  - Victim of crime [Unknown]
  - Formication [Unknown]
  - Knee arthroplasty [Unknown]
  - Arthralgia [Recovering/Resolving]
  - Hypoaesthesia [Unknown]
  - Arthralgia [Not Recovered/Not Resolved]
  - Pain [Unknown]
  - Pain in extremity [Unknown]
  - Post procedural swelling [Unknown]
  - Cyst [Unknown]
  - Skin disorder [Unknown]
  - Spinal operation [Recovered/Resolved]
  - Scratch [Unknown]

NARRATIVE: CASE EVENT DATE: 2018
